FAERS Safety Report 13026719 (Version 1)
Quarter: 2016Q4

REPORT INFORMATION
  Report Type: Spontaneous
  Country: US (occurrence: US)
  Receive Date: 20161214
  Receipt Date: 20161214
  Transmission Date: 20170207
  Serious: No
  Sender: FDA-Public Use
  Company Number: US-ELI_LILLY_AND_COMPANY-US201612002311

PATIENT
  Sex: Male

DRUGS (2)
  1. CIALIS [Suspect]
     Active Substance: TADALAFIL
     Indication: ERECTILE DYSFUNCTION
     Dosage: UNK UNK, UNKNOWN
     Route: 065
     Dates: start: 2016
  2. CIALIS [Suspect]
     Active Substance: TADALAFIL
     Indication: BENIGN PROSTATIC HYPERPLASIA

REACTIONS (4)
  - Polyuria [Unknown]
  - Penis disorder [Unknown]
  - Penile pain [Unknown]
  - Ejaculation disorder [Unknown]

NARRATIVE: CASE EVENT DATE: 201612
